FAERS Safety Report 6311061-7 (Version None)
Quarter: 2009Q3

REPORT INFORMATION
  Report Type: 
  Country: None (occurrence: None)
  Receive Date: 20090817
  Receipt Date: 20090811
  Transmission Date: 20100115
  Serious: Yes (Congenital Anomaly)
  Sender: FDA-Public Use
  Company Number: US-JNJFOC-20090804106

PATIENT

DRUGS (4)
  1. FLEXERIL [Suspect]
     Indication: DRUG EXPOSURE DURING PREGNANCY
  2. REBIF [Suspect]
     Indication: DRUG EXPOSURE DURING PREGNANCY
  3. BIRTH CONTROL PILLS [Suspect]
     Indication: DRUG EXPOSURE DURING PREGNANCY
  4. ENOXAPARIN SODIUM [Suspect]
     Indication: DRUG EXPOSURE DURING PREGNANCY

REACTIONS (2)
  - DRUG EXPOSURE DURING PREGNANCY [None]
  - SPINA BIFIDA [None]
